FAERS Safety Report 13059096 (Version 1)
Quarter: 2016Q4

REPORT INFORMATION
  Report Type: Spontaneous
  Country: US (occurrence: US)
  Receive Date: 20161223
  Receipt Date: 20161223
  Transmission Date: 20170207
  Serious: No
  Sender: FDA-Public Use
  Company Number: US-BAUSCH-BL-2016-012788

PATIENT
  Sex: Female

DRUGS (2)
  1. XENAZINE [Suspect]
     Active Substance: TETRABENAZINE
     Indication: HUNTINGTON^S DISEASE
     Route: 048
     Dates: start: 20160524
  2. XENAZINE [Suspect]
     Active Substance: TETRABENAZINE
     Dosage: TITRATED HER XENAZINE DOSE TO 25MG IN THE MORNING AND 12.5 MG IN THE AFTERNOON
     Route: 048
     Dates: start: 20160606

REACTIONS (2)
  - Feeling abnormal [Unknown]
  - Fatigue [Unknown]
